FAERS Safety Report 21730348 (Version 1)
Quarter: 2022Q4

REPORT INFORMATION
  Report Type: Report from Study
  Country: IT (occurrence: IT)
  Receive Date: 20221214
  Receipt Date: 20221214
  Transmission Date: 20230113
  Serious: Yes (Other)
  Sender: FDA-Public Use
  Company Number: None

PATIENT
  Age: 81 Year
  Sex: Female

DRUGS (9)
  1. FUROSEMIDE [Suspect]
     Active Substance: FUROSEMIDE
     Indication: Product used for unknown indication
     Dosage: DOSAGE: 25 MILLIGRAMS
  2. RAMIPRIL [Suspect]
     Active Substance: RAMIPRIL
     Indication: Product used for unknown indication
     Dosage: DOSAGE: 2.5 MILLIGRAMS
  3. CANRENOATE POTASSIUM [Suspect]
     Active Substance: CANRENOATE POTASSIUM
     Indication: Product used for unknown indication
  4. ATORVASTATIN [Concomitant]
     Active Substance: ATORVASTATIN
     Dosage: DOSAGE: 40 MILLIGRAM, ROUTE OF ADMINISTRATION: ORAL
  5. ALLOPURINOL [Concomitant]
     Active Substance: ALLOPURINOL
     Dosage: DOSAGE: 300 MILLIGRAM, ROUTE OF ADMINISTRATION: ORAL
  6. CARVEDILOL [Concomitant]
     Active Substance: CARVEDILOL
     Dosage: DOSAGE: 6.25 MILLIGRAM, ROUTE OF ADMINISTRATION: ORAL
  7. ASPIRIN [Concomitant]
     Active Substance: ASPIRIN
     Dosage: ROUTE OF ADMINISTRATION: ORAL
  8. METFORMIN [Concomitant]
     Active Substance: METFORMIN HYDROCHLORIDE
     Indication: Type 2 diabetes mellitus
     Dosage: DOSAGE: 1000  MILLIGRAM, ROUTE OF ADMINISTRATION: ORAL
  9. PANTOPRAZOLE [Concomitant]
     Active Substance: PANTOPRAZOLE
     Dosage: DOSAGE: 20 MILLIGRAM, ROUTE OF ADMINISTRATION: ORAL

REACTIONS (2)
  - Hyperkalaemia [Recovered/Resolved]
  - Diabetic metabolic decompensation [Recovered/Resolved]

NARRATIVE: CASE EVENT DATE: 20220622
